FAERS Safety Report 24459505 (Version 1)
Quarter: 2024Q4

REPORT INFORMATION
  Report Type: Report from Study
  Country: US (occurrence: US)
  Receive Date: 20241018
  Receipt Date: 20241018
  Transmission Date: 20250115
  Serious: No
  Sender: ROCHE
  Company Number: US-ROCHE-3530709

PATIENT
  Age: 62 Year
  Sex: Female
  Weight: 80.74 kg

DRUGS (23)
  1. RITUXAN [Suspect]
     Active Substance: RITUXIMAB
     Indication: Rheumatoid arthritis
     Dosage: YES
     Route: 041
     Dates: start: 20190419
  2. RITUXAN [Suspect]
     Active Substance: RITUXIMAB
     Dosage: FREQUENCY TEXT:DAY, 1 15 EVERY 4 MONTHS
     Route: 041
     Dates: start: 20230829
  3. ALBUTEROL [Concomitant]
     Active Substance: ALBUTEROL
     Indication: Dyspnoea
     Dates: start: 20200731
  4. ALPRAZOLAM [Concomitant]
     Active Substance: ALPRAZOLAM
     Route: 048
     Dates: start: 20220714
  5. AMLODIPINE [Concomitant]
     Active Substance: AMLODIPINE BESYLATE
     Dates: start: 20230227
  6. BENZONATATE [Concomitant]
     Active Substance: BENZONATATE
     Route: 048
     Dates: start: 20221120
  7. BUDESONIDE [Concomitant]
     Active Substance: BUDESONIDE
     Dosage: INHALE NEBULIZER
     Dates: start: 20201202
  8. CALCIUM [Concomitant]
     Active Substance: CALCIUM
     Dates: start: 20160609
  9. CHOLECALCIFEROL [Concomitant]
     Active Substance: CHOLECALCIFEROL
     Dates: start: 20210413
  10. DEXAMETHASONE [Concomitant]
     Active Substance: DEXAMETHASONE
     Dates: start: 20230406
  11. ATROPINE\DIPHENOXYLATE [Concomitant]
     Active Substance: ATROPINE\DIPHENOXYLATE
     Dosage: 2.5 MG- 0.025 MG
     Route: 048
     Dates: start: 20230105
  12. FINASTERIDE [Concomitant]
     Active Substance: FINASTERIDE
     Dates: start: 20230216
  13. FLUTICASONE PROPIONATE [Concomitant]
     Active Substance: FLUTICASONE PROPIONATE
     Dates: start: 20190730
  14. GABAPENTIN [Concomitant]
     Active Substance: GABAPENTIN
     Route: 048
     Dates: start: 20210312
  15. ACETAMINOPHEN\HYDROCODONE [Concomitant]
     Active Substance: ACETAMINOPHEN\HYDROCODONE
     Dosage: 7.5 MG/325 MG TABLETS
     Route: 048
     Dates: start: 20220406
  16. HYDROXYCHLOROQUINE [Concomitant]
     Active Substance: HYDROXYCHLOROQUINE
  17. LEVOCETIRIZINE HYDROCHLORIDE [Concomitant]
     Active Substance: LEVOCETIRIZINE HYDROCHLORIDE
  18. LEVOFLOXACIN [Concomitant]
     Active Substance: LEVOFLOXACIN
  19. MELOXICAM [Concomitant]
     Active Substance: MELOXICAM
  20. MUPIROCIN [Concomitant]
     Active Substance: MUPIROCIN
  21. PHENTERMINE [Concomitant]
     Active Substance: PHENTERMINE\PHENTERMINE HYDROCHLORIDE
  22. XOFLUZA [Concomitant]
     Active Substance: BALOXAVIR MARBOXIL
     Dates: start: 20211219
  23. TYLENOL [Concomitant]
     Active Substance: ACETAMINOPHEN
     Dates: start: 20140915

REACTIONS (1)
  - Stress [Not Recovered/Not Resolved]
